FAERS Safety Report 4480819-1 (Version None)
Quarter: 2004Q4

REPORT INFORMATION
  Report Type: 
  Country: None (occurrence: None)
  Receive Date: 20041019
  Receipt Date: 20041012
  Transmission Date: 20050328
  Serious: Yes (Death, Life-Threatening, Hospitalization)
  Sender: FDA-Public Use
  Company Number: 2004236460MX

PATIENT
  Age: 65 Year
  Sex: Male
  Weight: 74 kg

DRUGS (13)
  1. VANCOMYCIN [Suspect]
     Indication: STAPHYLOCOCCAL BACTERAEMIA
     Dosage: 1 G, BID, IV
     Route: 042
     Dates: start: 20040913, end: 20040920
  2. PREDNISONE [Suspect]
     Dosage: ORAL
     Route: 048
     Dates: start: 20040902
  3. SIROLIMUS (RAPAMYCIN) [Suspect]
     Dosage: ORAL
     Route: 048
     Dates: start: 20040902
  4. LEVOTHYROXINE SODIUM [Concomitant]
  5. OMEPRAZOLE [Concomitant]
  6. ITRACONAZOLE [Concomitant]
  7. GANCICLOVIR SODIUM [Concomitant]
  8. PRAVASTATIN [Concomitant]
  9. SENNOSIDE A (SENNOSIDE A) [Concomitant]
  10. ALBUMIN (HUMAN) [Concomitant]
  11. MEROPENEM (MEROPENEM) [Concomitant]
  12. AMPHOTERICIN B [Concomitant]
  13. VORICONAZOLE [Concomitant]

REACTIONS (7)
  - BACTERAEMIA [None]
  - COUGH [None]
  - ENDOCARDITIS [None]
  - HAEMOPTYSIS [None]
  - PYREXIA [None]
  - RESPIRATORY FAILURE [None]
  - THERAPY NON-RESPONDER [None]
